FAERS Safety Report 7128436-9 (Version None)
Quarter: 2010Q4

REPORT INFORMATION
  Report Type: 
  Country: None (occurrence: None)
  Receive Date: 20101130
  Receipt Date: 20101122
  Transmission Date: 20110411
  Serious: Yes (Death)
  Sender: FDA-Public Use
  Company Number: GR-JNJFOC-20101108261

PATIENT

DRUGS (5)
  1. DOXORUBICIN HCL [Suspect]
     Indication: MULTIPLE MYELOMA
     Dosage: DAYS 1-4
     Route: 042
  2. BORTEZOMIB [Suspect]
     Indication: MULTIPLE MYELOMA
     Dosage: DAYS 1, 4, 8 AND 11
     Route: 065
  3. DEXAMETHASONE [Suspect]
     Indication: MULTIPLE MYELOMA
     Dosage: DAYS 1-4 AND 8-11
     Route: 065
  4. ACYCLOVIR SODIUM [Concomitant]
     Indication: PROPHYLAXIS
     Route: 065
  5. CIPROFLOXACIN [Concomitant]
     Indication: PROPHYLAXIS
     Route: 065

REACTIONS (1)
  - INFECTION [None]
